FAERS Safety Report 8891103 (Version 1)
Quarter: 2012Q4

REPORT INFORMATION
  Report Type: 
  Country: CN (occurrence: CN)
  Receive Date: 20121107
  Receipt Date: 20121107
  Transmission Date: 20130627
  Serious: Yes (Other)
  Sender: FDA-Public Use
  Company Number: CN-ROCHE-1123556

PATIENT
  Sex: Male
  Weight: 66 kg

DRUGS (4)
  1. XELODA [Suspect]
     Indication: GASTROINTESTINAL CARCINOMA
     Dosage: second cycle
     Route: 048
     Dates: start: 20100927, end: 20101011
  2. XELODA [Suspect]
     Dosage: first cycle
     Route: 048
     Dates: start: 20100906, end: 20100920
  3. OXALIPLATIN [Concomitant]
     Indication: GASTROINTESTINAL CARCINOMA
     Dosage: second cycle
     Route: 042
     Dates: start: 20100927, end: 20101011
  4. OXALIPLATIN [Concomitant]
     Dosage: first cycle
     Route: 042
     Dates: start: 20100906, end: 20100920

REACTIONS (1)
  - Loss of consciousness [Recovered/Resolved]
